FAERS Safety Report 23719090 (Version 2)
Quarter: 2024Q2

REPORT INFORMATION
  Report Type: Spontaneous
  Country: CN (occurrence: CN)
  Receive Date: 20240408
  Receipt Date: 20240418
  Transmission Date: 20240715
  Serious: Yes (Other)
  Sender: FDA-Public Use
  Company Number: CN-002147023-NVSC2024CN073652

PATIENT
  Age: 80 Year
  Sex: Male

DRUGS (1)
  1. GLIVEC [Suspect]
     Active Substance: IMATINIB MESYLATE
     Indication: Product used for unknown indication
     Dosage: 400 MG
     Route: 048
     Dates: start: 20091231

REACTIONS (6)
  - Malignant neoplasm of renal pelvis [Unknown]
  - Gastrointestinal stoma complication [Unknown]
  - Abdominal infection [Unknown]
  - Hallucination [Unknown]
  - Aspiration pleural cavity [Unknown]
  - Influenza [Unknown]
